FAERS Safety Report 12202337 (Version 1)
Quarter: 2016Q1

REPORT INFORMATION
  Report Type: Spontaneous
  Country: JP (occurrence: JP)
  Receive Date: 20160322
  Receipt Date: 20160322
  Transmission Date: 20160526
  Serious: Yes (Other)
  Sender: FDA-Public Use
  Company Number: PHHY2016JP036243

PATIENT
  Age: 60 Year
  Sex: Female

DRUGS (4)
  1. RANIMUSTINE [Suspect]
     Active Substance: RANIMUSTINE
     Indication: PLASMA CELL MYELOMA
     Route: 065
  2. CYCLOPHOSPHAMIDE. [Suspect]
     Active Substance: CYCLOPHOSPHAMIDE
     Indication: PLASMA CELL MYELOMA
     Route: 065
  3. MELPHALAN [Suspect]
     Active Substance: MELPHALAN
     Indication: PLASMA CELL MYELOMA
     Route: 065
  4. PREDNISOLONE. [Suspect]
     Active Substance: PREDNISOLONE
     Indication: PLASMA CELL MYELOMA
     Route: 065

REACTIONS (2)
  - Hepatitis B [Recovered/Resolved]
  - Hepatitis acute [Recovered/Resolved]
